FAERS Safety Report 12679865 (Version 1)
Quarter: 2016Q3

REPORT INFORMATION
  Report Type: Spontaneous
  Country: US (occurrence: US)
  Receive Date: 20160824
  Receipt Date: 20160824
  Transmission Date: 20161109
  Serious: No
  Sender: FDA-Public Use
  Company Number: US-JNJFOC-20160709965

PATIENT
  Age: 55 Year
  Sex: Male
  Weight: 70.31 kg

DRUGS (4)
  1. CIALIS [Concomitant]
     Active Substance: TADALAFIL
     Indication: ALOPECIA
     Dosage: 8 MONTHS
     Route: 065
  2. NIZORAL A-D [Suspect]
     Active Substance: KETOCONAZOLE
     Route: 061
  3. NIZORAL A-D [Suspect]
     Active Substance: KETOCONAZOLE
     Indication: HAIR GROWTH ABNORMAL
     Route: 061
     Dates: start: 20160704, end: 20160708
  4. ROGAINE [Suspect]
     Active Substance: MINOXIDIL
     Indication: HAIR GROWTH ABNORMAL
     Route: 065

REACTIONS (4)
  - Skin mass [Not Recovered/Not Resolved]
  - Pain of skin [Not Recovered/Not Resolved]
  - Product use issue [Unknown]
  - Off label use [Unknown]

NARRATIVE: CASE EVENT DATE: 20160710
